FAERS Safety Report 19993800 (Version 1)
Quarter: 2021Q4

REPORT INFORMATION
  Report Type: Report from Study
  Country: None (occurrence: US)
  Receive Date: 20211026
  Receipt Date: 20211026
  Transmission Date: 20220303
  Serious: Yes (Other)
  Sender: FDA-Public Use
  Company Number: US-ABBVIE-21K-163-4133818-00

PATIENT
  Sex: Female

DRUGS (3)
  1. SKYRIZI [Suspect]
     Active Substance: RISANKIZUMAB-RZAA
     Indication: Product used for unknown indication
     Route: 048
  2. COVID-19 VACCINE [Concomitant]
     Indication: COVID-19 immunisation
     Dosage: PFIZER BIONTECH
     Route: 030
     Dates: start: 20210806, end: 20210806
  3. COVID-19 VACCINE [Concomitant]
     Dosage: PFIZER BIONTECH
     Route: 030
     Dates: start: 20210824, end: 20210824

REACTIONS (1)
  - Supraventricular tachycardia [Not Recovered/Not Resolved]
